FAERS Safety Report 13078396 (Version 1)
Quarter: 2017Q1

REPORT INFORMATION
  Report Type: Spontaneous
  Country: US (occurrence: US)
  Receive Date: 20170102
  Receipt Date: 20170102
  Transmission Date: 20170428
  Serious: Yes (Death, Life-Threatening, Hospitalization, Other)
  Sender: FDA-Public Use
  Company Number: IN-BRISTOL-MYERS SQUIBB COMPANY-BMS-2016-109775

PATIENT
  Age: 51 Year
  Sex: Male
  Weight: 92.8 kg

DRUGS (1)
  1. COUMADIN [Suspect]
     Active Substance: WARFARIN SODIUM
     Indication: ANTICOAGULANT THERAPY
     Dosage: 1 DF, QD
     Route: 048
     Dates: start: 20150807, end: 20150902

REACTIONS (2)
  - Plasma cell myeloma recurrent [Fatal]
  - Embolism [Recovered/Resolved]

NARRATIVE: CASE EVENT DATE: 20150902
